FAERS Safety Report 10884377 (Version 4)
Quarter: 2015Q2

REPORT INFORMATION
  Report Type: Spontaneous
  Country: US (occurrence: US)
  Receive Date: 20150304
  Receipt Date: 20150406
  Transmission Date: 20150821
  Serious: Yes (Death, Hospitalization)
  Sender: FDA-Public Use
  Company Number: US-UNITED THERAPEUTICS-UNT-2015-002158

PATIENT
  Age: 68 Year
  Sex: Female
  Weight: 84.13 kg

DRUGS (6)
  1. REMODULIN [Suspect]
     Active Substance: TREPROSTINIL
     Indication: PULMONARY HYPERTENSION
     Dosage: 0.075 ML, QH
     Route: 058
  2. REMODULIN [Suspect]
     Active Substance: TREPROSTINIL
     Indication: SCLERODERMA
     Dosage: 0.0833 ?G/KG, CONTINUING
     Route: 058
  3. ADCIRCA [Concomitant]
     Active Substance: TADALAFIL
     Indication: PRODUCT USED FOR UNKNOWN INDICATION
  4. REMODULIN [Suspect]
     Active Substance: TREPROSTINIL
     Indication: COR PULMONALE CHRONIC
     Dosage: 0.0380 ?G/KG, CONTINUING
     Route: 058
     Dates: start: 20110621
  5. REMODULIN [Suspect]
     Active Substance: TREPROSTINIL
     Dosage: 0.042 ML, QH
     Route: 058
  6. LETAIRIS [Concomitant]
     Active Substance: AMBRISENTAN
     Indication: PRODUCT USED FOR UNKNOWN INDICATION

REACTIONS (8)
  - Ascites [Unknown]
  - Hepatorenal syndrome [Unknown]
  - Death [Fatal]
  - Intestinal obstruction [Unknown]
  - Off label use [Unknown]
  - Abdominal distension [Unknown]
  - Autoimmune hepatitis [Unknown]
  - Hepatic cirrhosis [Unknown]

NARRATIVE: CASE EVENT DATE: 20150217
